FAERS Safety Report 5925686-1 (Version None)
Quarter: 2008Q4

REPORT INFORMATION
  Report Type: 
  Country: None (occurrence: None)
  Receive Date: 20081016
  Receipt Date: 20080929
  Transmission Date: 20090506
  Serious: Yes (Hospitalization)
  Sender: FDA-Public Use
  Company Number: 8031436

PATIENT
  Sex: Female

DRUGS (4)
  1. KEPPRA [Suspect]
     Dosage: PO
     Route: 048
  2. KEPPRA [Suspect]
     Dosage: PO
     Route: 048
  3. COVERSYL /00790701/ [Concomitant]
  4. CORTANCYL [Concomitant]

REACTIONS (1)
  - HYPONATRAEMIA [None]
